FAERS Safety Report 8512113-3 (Version None)
Quarter: 2012Q3

REPORT INFORMATION
  Report Type: 
  Country: None (occurrence: None)
  Receive Date: 20120716
  Receipt Date: 20120712
  Transmission Date: 20120928
  Serious: Yes (Death)
  Sender: FDA-Public Use
  Company Number: BR-B.I. PHARMACEUTICALS,INC./RIDGEFIELD-2012-BR-00772BR

PATIENT
  Sex: Male

DRUGS (8)
  1. AMIODARONE HYDROCHLORIDE [Concomitant]
     Indication: CARDIAC DISORDER
  2. BENERVA [Concomitant]
  3. ASMAX [Concomitant]
  4. TRAYENTA [Suspect]
     Indication: DIABETES MELLITUS
     Dosage: 5 MG
     Route: 048
     Dates: start: 20120601
  5. SIPAX [Concomitant]
     Indication: DEPRESSION
  6. ASPIRIN [Concomitant]
  7. METFORMIN HCL [Concomitant]
     Indication: DIABETES MELLITUS
  8. MEDICATION NOT FURTHER SPECIFIED [Concomitant]
     Indication: PROSTATIC DISORDER

REACTIONS (2)
  - PNEUMONIA [None]
  - LUNG DISORDER [None]
